FAERS Safety Report 8879047 (Version 1)
Quarter: 2012Q4

REPORT INFORMATION
  Report Type: Spontaneous
  Country: US (occurrence: None)
  Receive Date: 20121031
  Receipt Date: 20121031
  Transmission Date: 20130627
  Serious: Yes (Life-Threatening, Hospitalization)
  Sender: FDA-Public Use
  Company Number: None

PATIENT
  Sex: Female
  Weight: 77.11 kg

DRUGS (2)
  1. HYDROCORTISONE [Suspect]
     Dosage: 10 mg
     Route: 048
     Dates: start: 20100710, end: 20110111
  2. HYDROCORTISONE [Suspect]
     Dosage: 10 mg
     Route: 048
     Dates: start: 20100710, end: 20110111

REACTIONS (2)
  - Dyspnoea [None]
  - Palpitations [None]
